FAERS Safety Report 24936641 (Version 1)
Quarter: 2025Q1

REPORT INFORMATION
  Report Type: Spontaneous
  Country: JP (occurrence: JP)
  Receive Date: 20250206
  Receipt Date: 20250206
  Transmission Date: 20250409
  Serious: Yes (Other)
  Sender: BRISTOL-MYERS SQUIBB COMPANY
  Company Number: JP-TAIHO-2025-000475

PATIENT
  Age: 7 Decade

DRUGS (2)
  1. ABRAXANE [Suspect]
     Active Substance: PACLITAXEL
     Indication: Pancreatic carcinoma
     Dosage: 125 MG/M2/DAY, DETAILS NOT REPORTED, CYCLE 1?DAILY DOSE: 125 MILLIGRAM(S)/SQ. METER
     Route: 041
  2. GEMZAR [Concomitant]
     Active Substance: GEMCITABINE HYDROCHLORIDE
     Indication: Pancreatic carcinoma
     Dosage: 1000 MG/M2/DAY, DETAILS NOT REPORTED, CYCLE 1?DAILY DOSE: 1000 MILLIGRAM(S)/SQ. METER
     Route: 041

REACTIONS (1)
  - Ventricular tachycardia [Recovered/Resolved]

NARRATIVE: CASE EVENT DATE: 20250115
